FAERS Safety Report 8229643-4 (Version None)
Quarter: 2012Q1

REPORT INFORMATION
  Report Type: 
  Country: None (occurrence: None)
  Receive Date: 20120322
  Receipt Date: 20120316
  Transmission Date: 20120608
  Serious: Yes (Other)
  Sender: FDA-Public Use
  Company Number: PHHY2010CA79680

PATIENT
  Sex: Female
  Weight: 61.5 kg

DRUGS (9)
  1. VITAMIN D [Concomitant]
     Dosage: 10000 IU, UNK
     Dates: start: 20091001
  2. HORMONES [Concomitant]
  3. MIACALCIN [Concomitant]
     Dosage: 200 IU, UNK
  4. ZOLEDRONOC ACID [Suspect]
     Dosage: UNK UKN, UNK
     Route: 042
     Dates: start: 20110608
  5. FORTEO [Concomitant]
     Dosage: 20 MG, UNK
  6. CALCIUM CARBONATE [Concomitant]
     Dosage: 500 MG, BID
     Dates: start: 20091001
  7. EVISTA [Concomitant]
     Dosage: 670 MG, QD
  8. ZOLEDRONOC ACID [Suspect]
     Indication: OSTEOPOROSIS
     Dosage: 5 MG, UNK
     Route: 042
     Dates: start: 20091211, end: 20101201
  9. DIDROCAL [Concomitant]
     Dosage: 400 MG, UNK

REACTIONS (2)
  - ENDOMETRIAL CANCER [None]
  - OVARIAN CANCER [None]
